FAERS Safety Report 8811393 (Version 1)
Quarter: 2012Q4

REPORT INFORMATION
  Report Type: 
  Country: US (occurrence: US)
  Receive Date: 20120927
  Receipt Date: 20120927
  Transmission Date: 20130627
  Serious: Yes (Hospitalization, Other)
  Sender: FDA-Public Use
  Company Number: US-ASTELLAS-2012US007974

PATIENT
  Age: 71 Year
  Sex: Female

DRUGS (1)
  1. PROGRAF [Suspect]
     Indication: TRANSPLANT
     Dosage: 1 mg, bid
     Route: 048
     Dates: start: 20110112

REACTIONS (3)
  - Knee operation [Recovering/Resolving]
  - Fracture [Unknown]
  - Hip surgery [Recovering/Resolving]
